FAERS Safety Report 11115784 (Version 2)
Quarter: 2015Q3

REPORT INFORMATION
  Report Type: Spontaneous
  Country: US (occurrence: US)
  Receive Date: 20150515
  Receipt Date: 20150828
  Transmission Date: 20151125
  Serious: Yes (Hospitalization, Disabling, Other)
  Sender: FDA-Public Use
  Company Number: US-009507513-1204USA00499

PATIENT
  Sex: Female
  Weight: 63.95 kg

DRUGS (6)
  1. FOSAMAX [Suspect]
     Active Substance: ALENDRONATE SODIUM
     Indication: OSTEOPOROSIS
     Dosage: 70 MG, UNK
     Route: 048
     Dates: start: 1995, end: 2008
  2. FOSAMAX [Suspect]
     Active Substance: ALENDRONATE SODIUM
     Indication: OSTEOPENIA
  3. ALENDRONATE SODIUM. [Suspect]
     Active Substance: ALENDRONATE SODIUM
     Indication: OSTEOPOROSIS
     Dosage: 70 MG, UNK
     Route: 048
     Dates: start: 20080529, end: 20100323
  4. CALCIUM +VITAMIN D+K [Concomitant]
     Indication: ROUTINE HEALTH MAINTENANCE
     Dosage: UNK
     Route: 048
     Dates: start: 1994
  5. ALENDRONATE SODIUM. [Suspect]
     Active Substance: ALENDRONATE SODIUM
     Indication: OSTEOPENIA
     Dosage: 70 MG, UNK
     Route: 048
     Dates: start: 2008, end: 201006
  6. VITAMINS (UNSPECIFIED) [Concomitant]
     Active Substance: VITAMINS
     Indication: ROUTINE HEALTH MAINTENANCE
     Dosage: UNK
     Route: 048
     Dates: start: 1994

REACTIONS (46)
  - Intramedullary rod insertion [Unknown]
  - Femur fracture [Recovering/Resolving]
  - Medical device removal [Unknown]
  - Hyperlipidaemia [Unknown]
  - Diverticulum [Unknown]
  - Laceration [Unknown]
  - Foot fracture [Unknown]
  - Uterine disorder [Unknown]
  - Open reduction of fracture [Unknown]
  - Haemorrhagic anaemia [Recovered/Resolved]
  - Osteoarthritis [Unknown]
  - Upper limb fracture [Unknown]
  - Pain in extremity [Unknown]
  - Surgery [Unknown]
  - Femur fracture [Recovered/Resolved]
  - Scoliosis [Unknown]
  - Gastrointestinal disorder [Unknown]
  - Osteoarthritis [Not Recovered/Not Resolved]
  - Knee arthroplasty [Unknown]
  - Cardiac disorder [Unknown]
  - Splenic cyst [Unknown]
  - Knee operation [Unknown]
  - Rotator cuff syndrome [Unknown]
  - Osteoporosis [Not Recovered/Not Resolved]
  - Femur fracture [Recovering/Resolving]
  - Fracture delayed union [Recovered/Resolved]
  - Intervertebral disc protrusion [Not Recovered/Not Resolved]
  - Hepatic cyst [Unknown]
  - Renal cyst [Unknown]
  - Osteoarthritis [Unknown]
  - Constipation [Unknown]
  - Pain in extremity [Unknown]
  - Blood cholesterol increased [Unknown]
  - Femur fracture [Recovering/Resolving]
  - Intramedullary rod insertion [Unknown]
  - Bone disorder [Unknown]
  - Intramedullary rod insertion [Unknown]
  - Knee arthroplasty [Unknown]
  - Fatigue [Unknown]
  - Pain in extremity [Unknown]
  - Low turnover osteopathy [Not Recovered/Not Resolved]
  - Femur fracture [Unknown]
  - Spinal osteoarthritis [Not Recovered/Not Resolved]
  - Knee deformity [Unknown]
  - Arthropathy [Unknown]
  - Arthritis [Unknown]

NARRATIVE: CASE EVENT DATE: 2004
